FAERS Safety Report 5415310-9 (Version None)
Quarter: 2007Q3

REPORT INFORMATION
  Report Type: 
  Country: None (occurrence: None)
  Receive Date: 20070813
  Receipt Date: 20070801
  Transmission Date: 20080115
  Serious: Yes (Other)
  Sender: FDA-Public Use
  Company Number: GXKR2007GB06587

PATIENT
  Age: 82 Year
  Sex: Male

DRUGS (2)
  1. ACETYLSALICYLIC ACID (NGX)(ACETYLSALIZYLIC ACID) UNKNOWN [Suspect]
     Dosage: 75 MG, DAILY, URETHRAL
     Route: 066
  2. ACETAMINOPHEN [Concomitant]

REACTIONS (1)
  - POST PROCEDURAL HAEMORRHAGE [None]
